FAERS Safety Report 10169280 (Version 3)
Quarter: 2015Q3

REPORT INFORMATION
  Report Type: Other
  Country: IT (occurrence: IT)
  Receive Date: 20140513
  Receipt Date: 20150901
  Transmission Date: 20151125
  Serious: Yes (Hospitalization)
  Sender: FDA-Public Use
  Company Number: IT-NOVEN-14IT009536

PATIENT
  Age: 40 Year
  Sex: Male

DRUGS (6)
  1. ZOLPIDEM [Concomitant]
     Active Substance: ZOLPIDEM\ZOLPIDEM TARTRATE
     Indication: INTENTIONAL SELF-INJURY
     Dosage: 40 DF, SINGLE (TOTAL)
     Route: 048
     Dates: start: 20140426, end: 20140426
  2. PAROXETINE [Suspect]
     Active Substance: PAROXETINE\PAROXETINE HYDROCHLORIDE
     Indication: INTENTIONAL SELF-INJURY
     Dosage: 2 DF (20 MG TABLETS), SINGLE (TOTAL)
     Route: 048
     Dates: start: 20140426, end: 20140426
  3. INDOXEN [Concomitant]
     Active Substance: INDOMETHACIN
     Indication: INTENTIONAL SELF-INJURY
     Dosage: 5 DF (50 MG HARD CAPSULES), SINGLE (TOTAL)
     Route: 048
     Dates: start: 20140426, end: 20140426
  4. DELORAZEPAM [Concomitant]
     Active Substance: DELORAZEPAM
     Indication: INTENTIONAL SELF-INJURY
     Dosage: 80 DROPS (1 MG/ML DROPS), TOTAL
     Route: 048
     Dates: start: 20140426, end: 20140426
  5. ETHANOL [Concomitant]
     Active Substance: ALCOHOL
     Indication: PRODUCT USED FOR UNKNOWN INDICATION
     Dosage: UNK
  6. GABAPENTIN. [Concomitant]
     Active Substance: GABAPENTIN
     Indication: PRODUCT USED FOR UNKNOWN INDICATION
     Dosage: UNK

REACTIONS (2)
  - Drug abuse [Recovered/Resolved]
  - Bradykinesia [Recovered/Resolved]

NARRATIVE: CASE EVENT DATE: 20140427
